FAERS Safety Report 7315054-2 (Version None)
Quarter: 2011Q1

REPORT INFORMATION
  Report Type: 
  Country: None (occurrence: None)
  Receive Date: 20110225
  Receipt Date: 20100820
  Transmission Date: 20110831
  Serious: No
  Sender: FDA-Public Use
  Company Number: US-MYLANLABS-2010S1004922

PATIENT
  Age: 22 Year
  Sex: Male

DRUGS (2)
  1. CLARAVIS [Suspect]
     Indication: ACNE
     Route: 048
     Dates: start: 20091221, end: 20100301
  2. AMNESTEEM [Suspect]
     Indication: ACNE
     Route: 048
     Dates: start: 20091221, end: 20100301

REACTIONS (2)
  - ASPARTATE AMINOTRANSFERASE INCREASED [None]
  - ALANINE AMINOTRANSFERASE INCREASED [None]
